FAERS Safety Report 4838154-5 (Version None)
Quarter: 2005Q4

REPORT INFORMATION
  Report Type: 
  Country: None (occurrence: None)
  Receive Date: 20051128
  Receipt Date: 20051115
  Transmission Date: 20060501
  Serious: Yes (Hospitalization)
  Sender: FDA-Public Use
  Company Number: FR-NOVOPROD-248645

PATIENT
  Age: 29 Year
  Sex: Male

DRUGS (1)
  1. NORDITROPIN [Suspect]
     Indication: ILL-DEFINED DISORDER
     Dates: start: 20050622

REACTIONS (1)
  - RESPIRATORY DISTRESS [None]
